FAERS Safety Report 13016585 (Version 3)
Quarter: 2017Q2

REPORT INFORMATION
  Report Type: Report from Study
  Country: None (occurrence: US)
  Receive Date: 20161212
  Receipt Date: 20170503
  Transmission Date: 20170830
  Serious: Yes (Hospitalization, Other)
  Sender: FDA-Public Use
  Company Number: US-ABBVIE-16K-163-1801522-00

PATIENT
  Sex: Male

DRUGS (4)
  1. DIPHT W/PERTUSS/POLIOMYELITIS/TETANUSVACCINE [Suspect]
     Active Substance: DIPHTHERIA AND TETANUS TOXOIDS AND ACELLULAR PERTUSSIS ADSORBED AND INACTIVATED POLIOVIRUS VACCINE
     Indication: PRODUCT USED FOR UNKNOWN INDICATION
     Route: 065
     Dates: start: 2016, end: 2016
  2. HUMIRA [Suspect]
     Active Substance: ADALIMUMAB
     Indication: RHEUMATOID ARTHRITIS
     Route: 058
     Dates: start: 20170117
  3. HUMIRA [Suspect]
     Active Substance: ADALIMUMAB
     Indication: PSORIASIS
     Route: 058
     Dates: end: 201611
  4. HUMIRA [Suspect]
     Active Substance: ADALIMUMAB
     Indication: PSORIATIC ARTHROPATHY

REACTIONS (11)
  - Weight decreased [Recovered/Resolved]
  - Condition aggravated [Recovering/Resolving]
  - Hypotonia [Recovering/Resolving]
  - Volvulus [Recovered/Resolved]
  - Sepsis [Recovering/Resolving]
  - Cellulitis [Recovered/Resolved]
  - Cellulitis [Recovered/Resolved]
  - Wound secretion [Recovering/Resolving]
  - Hyperkeratosis [Recovering/Resolving]
  - Cellulitis [Recovering/Resolving]
  - Hernia [Recovered/Resolved]

NARRATIVE: CASE EVENT DATE: 2010
